FAERS Safety Report 5036143-1 (Version None)
Quarter: 2006Q2

REPORT INFORMATION
  Report Type: 
  Country: None (occurrence: None)
  Receive Date: 20060531
  Receipt Date: 20060223
  Transmission Date: 20061013
  Serious: No
  Sender: FDA-Public Use
  Company Number: PHEH2006US02574

PATIENT
  Age: 24 Year
  Sex: Female
  Weight: 23.9046 kg

DRUGS (4)
  1. EXJADE [Suspect]
     Indication: THALASSAEMIA BETA
     Dosage: 1000 MG QD ORAL
     Route: 048
     Dates: start: 20060206, end: 20060223
  2. PENICILLIN VK [Concomitant]
  3. FOLIC ACID [Concomitant]
  4. CHOLATE SODIUM (CHOLATE SODIUM) [Concomitant]

REACTIONS (2)
  - PRURITUS [None]
  - RASH MORBILLIFORM [None]
